FAERS Safety Report 6748404-6 (Version None)
Quarter: 2010Q2

REPORT INFORMATION
  Report Type: 
  Country: None (occurrence: None)
  Receive Date: 20100527
  Receipt Date: 20100527
  Transmission Date: 20101027
  Serious: Yes (Disabling)
  Sender: FDA-Public Use
  Company Number: None

PATIENT
  Age: 66 Year
  Sex: Female
  Weight: 62.5964 kg

DRUGS (1)
  1. RECLAST [Suspect]
     Indication: OSTEOPOROSIS
     Dosage: 1 TIME A YEAR
     Dates: start: 20080528

REACTIONS (5)
  - ARTHRITIS [None]
  - PAIN IN EXTREMITY [None]
  - SKIN DISORDER [None]
  - SUNBURN [None]
  - VAGINAL DISORDER [None]
